FAERS Safety Report 11658823 (Version 1)
Quarter: 2015Q4

REPORT INFORMATION
  Report Type: Spontaneous
  Country: AU (occurrence: AU)
  Receive Date: 20151026
  Receipt Date: 20151026
  Transmission Date: 20160304
  Serious: Yes (Other)
  Sender: FDA-Public Use
  Company Number: AU-PFIZER INC-2015330967

PATIENT
  Age: 35 Year
  Sex: Male

DRUGS (10)
  1. APO-IRBESARTAN [Concomitant]
     Dosage: UNK
  2. CODAPANE FORTE [Concomitant]
     Dosage: UNK
  3. VALPRO [Interacting]
     Active Substance: VALPROATE SODIUM
     Dosage: UNK
  4. EFFEXOR XR [Interacting]
     Active Substance: VENLAFAXINE HYDROCHLORIDE
     Dosage: 37.5 MG, DAILY
     Dates: start: 20150718, end: 201508
  5. BRUFEN [Concomitant]
     Active Substance: IBUPROFEN
     Dosage: UNK
  6. EFFEXOR XR [Interacting]
     Active Substance: VENLAFAXINE HYDROCHLORIDE
     Dosage: 12.5 MG, UNK
     Dates: end: 201509
  7. ANTENEX [Concomitant]
     Active Substance: DIAZEPAM
     Dosage: UNK
  8. EFFEXOR XR [Suspect]
     Active Substance: VENLAFAXINE HYDROCHLORIDE
     Indication: BIPOLAR DISORDER
     Dosage: 75 MG, DAILY
     Dates: start: 20150703, end: 20150717
  9. EFFEXOR XR [Interacting]
     Active Substance: VENLAFAXINE HYDROCHLORIDE
     Dosage: 50 MG, UNK
  10. SOLIAN [Concomitant]
     Active Substance: AMISULPRIDE
     Dosage: UNK

REACTIONS (8)
  - Sleep disorder [Unknown]
  - Eyelid disorder [Unknown]
  - Vision blurred [Unknown]
  - Muscular weakness [Unknown]
  - Drug interaction [Unknown]
  - Aggression [Unknown]
  - Dizziness [Unknown]
  - Abnormal behaviour [Unknown]

NARRATIVE: CASE EVENT DATE: 201507
